FAERS Safety Report 15894960 (Version 2)
Quarter: 2019Q1

REPORT INFORMATION
  Report Type: Spontaneous
  Country: JP (occurrence: JP)
  Receive Date: 20190131
  Receipt Date: 20190227
  Transmission Date: 20190417
  Serious: Yes (Other)
  Sender: FDA-Public Use
  Company Number: JP-EISAI MEDICAL RESEARCH-EC-2019-051164

PATIENT
  Sex: Male

DRUGS (2)
  1. LENVIMA [Suspect]
     Active Substance: LENVATINIB
     Route: 048
     Dates: start: 2018
  2. LENVIMA [Suspect]
     Active Substance: LENVATINIB
     Indication: HEPATOCELLULAR CARCINOMA
     Route: 048
     Dates: start: 201803, end: 2018

REACTIONS (5)
  - Anaemia [Unknown]
  - Liver disorder [Unknown]
  - Inflammation [Unknown]
  - Flank pain [Unknown]
  - Liver carcinoma ruptured [Unknown]

NARRATIVE: CASE EVENT DATE: 2018
